FAERS Safety Report 26069507 (Version 1)
Quarter: 2025Q4

REPORT INFORMATION
  Report Type: Spontaneous
  Country: EU (occurrence: EU)
  Receive Date: 20251120
  Receipt Date: 20251120
  Transmission Date: 20260118
  Serious: Yes (Life-Threatening)
  Sender: RANBAXY
  Company Number: EU-AFSSAPS-DJ2025001273

PATIENT
  Age: 65 Year
  Sex: Male
  Weight: 65 kg

DRUGS (2)
  1. AMLODIPINE [Suspect]
     Active Substance: AMLODIPINE BESYLATE
     Indication: Hypertension
     Dosage: UNK
     Route: 048
     Dates: end: 20250522
  2. TEGRETOL [Suspect]
     Active Substance: CARBAMAZEPINE
     Indication: Trigeminal neuralgia
     Dosage: 4000 MILLIGRAM, DAILY
     Route: 048
     Dates: end: 20250522

REACTIONS (5)
  - Intentional overdose [Recovered/Resolved]
  - Coma [Recovering/Resolving]
  - Conduction disorder [Recovering/Resolving]
  - Bronchospasm [Recovering/Resolving]
  - Vasoplegia syndrome [Recovering/Resolving]

NARRATIVE: CASE EVENT DATE: 20250501
